FAERS Safety Report 9735127 (Version 1)
Quarter: 2013Q4

REPORT INFORMATION
  Report Type: Spontaneous
  Country: US (occurrence: None)
  Receive Date: 20131204
  Receipt Date: 20131204
  Transmission Date: 20140711
  Serious: Yes (Death)
  Sender: FDA-Public Use
  Company Number: SYM-2013-13650

PATIENT
  Age: 77 Year
  Sex: Male

DRUGS (1)
  1. XENAZINE [Suspect]
     Route: 048
     Dates: start: 20130214, end: 20131126

REACTIONS (1)
  - Death [None]
